FAERS Safety Report 25924731 (Version 1)
Quarter: 2025Q4

REPORT INFORMATION
  Report Type: Spontaneous
  Country: US (occurrence: None)
  Receive Date: 20251013
  Receipt Date: 20251013
  Transmission Date: 20260117
  Serious: No
  Sender: FDA-CTU
  Company Number: None

PATIENT
  Age: 29 Day
  Sex: Male
  Weight: 2.68 kg

DRUGS (1)
  1. BEYFORTUS [Suspect]
     Active Substance: NIRSEVIMAB-ALIP
     Route: 030

REACTIONS (2)
  - Circumstance or information capable of leading to medication error [None]
  - Extra dose administered [None]

NARRATIVE: CASE EVENT DATE: 20251003
